FAERS Safety Report 4701270-2 (Version None)
Quarter: 2005Q2

REPORT INFORMATION
  Report Type: 
  Country: None (occurrence: None)
  Receive Date: 20050628
  Receipt Date: 20050325
  Transmission Date: 20051028
  Serious: Yes (Hospitalization)
  Sender: FDA-Public Use
  Company Number: US-MERCK-0503USA05000

PATIENT
  Age: 70 Year
  Sex: Female
  Weight: 77 kg

DRUGS (9)
  1. VIOXX [Suspect]
     Indication: MONARTHRITIS
     Route: 048
     Dates: start: 20020417, end: 20040524
  2. VIOXX [Suspect]
     Route: 048
     Dates: start: 20020417, end: 20040524
  3. VIOXX [Suspect]
     Route: 048
     Dates: start: 20021014
  4. PROTONIX [Concomitant]
     Indication: STOMACH DISCOMFORT
     Route: 065
     Dates: start: 20010101
  5. PROTONIX [Concomitant]
     Indication: ULCER
     Route: 065
     Dates: start: 20010101
  6. NORVASC [Concomitant]
     Indication: BLOOD PRESSURE INCREASED
     Route: 065
  7. MICARDIS [Concomitant]
     Indication: BLOOD PRESSURE INCREASED
     Route: 065
  8. ACTONEL [Concomitant]
     Route: 065
  9. MIRTAZAPINE [Concomitant]
     Route: 065

REACTIONS (7)
  - BLOOD CHOLESTEROL INCREASED [None]
  - CEREBROVASCULAR ACCIDENT [None]
  - CHRONIC OBSTRUCTIVE AIRWAYS DISEASE EXACERBATED [None]
  - CHRONIC OBSTRUCTIVE PULMONARY DISEASE [None]
  - EPISTAXIS [None]
  - HAEMORRHAGE [None]
  - HYPOXIA [None]
